FAERS Safety Report 14831875 (Version 2)
Quarter: 2019Q3

REPORT INFORMATION
  Report Type: Report from Study
  Country: GB (occurrence: GB)
  Receive Date: 20180501
  Receipt Date: 20190909
  Transmission Date: 20191004
  Serious: Yes (Other)
  Sender: FDA-Public Use
  Company Number: PHHY2018GB075198

PATIENT
  Sex: Female

DRUGS (2)
  1. OMNITROPE [Suspect]
     Active Substance: SOMATROPIN
     Dosage: 0.3 MG, AS DIRECTED
     Route: 058
     Dates: start: 20170811
  2. OMNITROPE [Suspect]
     Active Substance: SOMATROPIN
     Indication: GROWTH HORMONE DEFICIENCY
     Dosage: 0.3 MG, AS DIRECTED
     Route: 058
     Dates: start: 20170811

REACTIONS (7)
  - Aphonia [Unknown]
  - Nasopharyngitis [Unknown]
  - Throat irritation [Unknown]
  - Pituitary tumour [Unknown]
  - Lower respiratory tract infection [Unknown]
  - Cough [Unknown]
  - Traumatic lung injury [Recovering/Resolving]
